FAERS Safety Report 14091535 (Version 1)
Quarter: 2017Q4

REPORT INFORMATION
  Report Type: Spontaneous
  Country: US (occurrence: US)
  Receive Date: 20171016
  Receipt Date: 20171016
  Transmission Date: 20180321
  Serious: Yes (Hospitalization)
  Sender: FDA-Public Use
  Company Number: US-ROCHE-2005345

PATIENT
  Age: 73 Year
  Sex: Male
  Weight: 79 kg

DRUGS (14)
  1. FERROUS SULFATE. [Concomitant]
     Active Substance: FERROUS SULFATE
     Route: 065
  2. SENNA [Concomitant]
     Active Substance: SENNA LEAF\SENNOSIDES\SENNOSIDES A AND B
     Route: 048
  3. COBIMETINIB. [Suspect]
     Active Substance: COBIMETINIB
     Indication: ROSAI-DORFMAN SYNDROME
     Route: 048
     Dates: start: 20170224
  4. PREGABALIN. [Concomitant]
     Active Substance: PREGABALIN
     Route: 065
  5. CEFTRIAXONE. [Concomitant]
     Active Substance: CEFTRIAXONE
     Route: 065
  6. SULFAMETHOXAZOLE/TRIMETHOPRIM [Concomitant]
     Active Substance: SULFAMETHOXAZOLE\TRIMETHOPRIM
     Dosage: 800 MG-160 MG
     Route: 065
  7. ENOXAPARIN [Concomitant]
     Active Substance: ENOXAPARIN
     Route: 058
  8. OXYCONTIN [Concomitant]
     Active Substance: OXYCODONE HYDROCHLORIDE
     Route: 065
  9. POLYETHYLENE GLYCOL 3350. [Concomitant]
     Active Substance: POLYETHYLENE GLYCOL 3350
     Route: 048
  10. OXYBUTYNIN. [Concomitant]
     Active Substance: OXYBUTYNIN CHLORIDE
     Route: 065
  11. TAMSULOSIN [Concomitant]
     Active Substance: TAMSULOSIN
     Route: 065
  12. DOCUSATE SODIUM. [Concomitant]
     Active Substance: DOCUSATE SODIUM
     Route: 048
  13. ASPIRIN. [Concomitant]
     Active Substance: ASPIRIN
     Route: 065
  14. RANITIDINE HYDROCHLORIDE. [Concomitant]
     Active Substance: RANITIDINE HYDROCHLORIDE
     Route: 065

REACTIONS (4)
  - Urinary tract infection [Unknown]
  - Pneumonia [Unknown]
  - Hypotension [Unknown]
  - Dyspnoea [Unknown]

NARRATIVE: CASE EVENT DATE: 20171003
